FAERS Safety Report 4411060-6 (Version None)
Quarter: 2004Q2

REPORT INFORMATION
  Report Type: 
  Country: None (occurrence: None)
  Receive Date: 20040630
  Receipt Date: 20040512
  Transmission Date: 20050107
  Serious: No
  Sender: FDA-Public Use
  Company Number: 04P-163-0260504-00

PATIENT
  Age: 78 Year
  Sex: Female
  Weight: 59.4212 kg

DRUGS (10)
  1. HUMIRA [Suspect]
     Indication: RHEUMATOID ARTHRITIS
     Dosage: 40 MG, 1 IN 2 WK, SUBCUTANEOUS
     Route: 058
     Dates: start: 20040303, end: 20040428
  2. METHOTREXATE [Concomitant]
  3. PREDNISONE [Concomitant]
  4. METFORMIN [Concomitant]
  5. ATORVASTATIN [Concomitant]
  6. LISINOPRIL [Concomitant]
  7. FOLIC ACID [Concomitant]
  8. ESOMEPRAZOLE [Concomitant]
  9. MULTIVITAMIN [Concomitant]
  10. CALCIUM [Concomitant]

REACTIONS (1)
  - THROAT IRRITATION [None]
